APPROVED DRUG PRODUCT: ALBUTEROL SULFATE
Active Ingredient: ALBUTEROL SULFATE
Strength: EQ 4MG BASE
Dosage Form/Route: TABLET;ORAL
Application: A213524 | Product #002
Applicant: HIBROW HEALTHCARE PRIVATE LTD
Approved: Oct 8, 2020 | RLD: No | RS: No | Type: DISCN